FAERS Safety Report 7185808-4 (Version None)
Quarter: 2010Q4

REPORT INFORMATION
  Report Type: 
  Country: None (occurrence: None)
  Receive Date: 20101222
  Receipt Date: 20100609
  Transmission Date: 20110411
  Serious: No
  Sender: FDA-Public Use
  Company Number: US-AMGEN-QUU415913

PATIENT

DRUGS (1)
  1. ENBREL [Suspect]
     Indication: RHEUMATOID ARTHRITIS
     Dosage: 50 MG, QWK
     Route: 058
     Dates: start: 20100422

REACTIONS (6)
  - ASTHENIA [None]
  - HEADACHE [None]
  - HYPOGLYCAEMIA [None]
  - LOCAL SWELLING [None]
  - TREMOR [None]
  - VISION BLURRED [None]
